FAERS Safety Report 7238723-1 (Version None)
Quarter: 2011Q1

REPORT INFORMATION
  Report Type: 
  Country: None (occurrence: None)
  Receive Date: 20110121
  Receipt Date: 20110119
  Transmission Date: 20110831
  Serious: Yes (Other)
  Sender: FDA-Public Use
  Company Number: US-BAXTER-2011BH001592

PATIENT
  Age: 28 Month
  Sex: Female
  Weight: 8 kg

DRUGS (3)
  1. ETOPOSIDE [Suspect]
     Indication: RHABDOMYOSARCOMA
     Route: 042
  2. MESNA [Suspect]
     Indication: RHABDOMYOSARCOMA
     Route: 042
  3. IFOSFAMIDE [Suspect]
     Indication: RHABDOMYOSARCOMA
     Route: 042

REACTIONS (1)
  - NEUROTOXICITY [None]
